FAERS Safety Report 6159346-1 (Version None)
Quarter: 2009Q2

REPORT INFORMATION
  Report Type: 
  Country: None (occurrence: None)
  Receive Date: 20090415
  Receipt Date: 20090415
  Transmission Date: 20091009
  Serious: Yes (Other)
  Sender: FDA-Public Use
  Company Number: None

PATIENT
  Age: 23 Year
  Sex: Female
  Weight: 58.9676 kg

DRUGS (1)
  1. GEODON [Suspect]
     Indication: BIPOLAR DISORDER
     Dosage: 60MG TWICE DAILY PO
     Route: 048
     Dates: start: 20081220, end: 20090414

REACTIONS (3)
  - BRUXISM [None]
  - DYSKINESIA [None]
  - MUSCLE CONTRACTURE [None]
